FAERS Safety Report 25020835 (Version 5)
Quarter: 2025Q4

REPORT INFORMATION
  Report Type: Spontaneous
  Country: JP (occurrence: JP)
  Receive Date: 20250227
  Receipt Date: 20251208
  Transmission Date: 20260118
  Serious: Yes (Life-Threatening, Hospitalization, Other)
  Sender: BRISTOL-MYERS SQUIBB COMPANY
  Company Number: JP-BRISTOL-MYERS SQUIBB COMPANY-2025-029446

PATIENT
  Age: 73 Year
  Sex: Male

DRUGS (2)
  1. YERVOY [Suspect]
     Active Substance: IPILIMUMAB
     Indication: Oesophageal carcinoma
     Route: 041
  2. OPDIVO [Suspect]
     Active Substance: NIVOLUMAB
     Indication: Oesophageal carcinoma
     Route: 041

REACTIONS (8)
  - Dyspnoea [Recovering/Resolving]
  - Immune-mediated myocarditis [Not Recovered/Not Resolved]
  - Immune-mediated myositis [Unknown]
  - Muscular weakness [Recovering/Resolving]
  - Atrioventricular block complete [Unknown]
  - Hyporeflexia [Unknown]
  - Respiratory failure [Recovering/Resolving]
  - Immune-mediated myasthenia gravis [Unknown]
